FAERS Safety Report 5546385-4 (Version None)
Quarter: 2007Q4

REPORT INFORMATION
  Report Type: 
  Country: None (occurrence: None)
  Receive Date: 20071211
  Receipt Date: 20070207
  Transmission Date: 20080405
  Serious: No
  Sender: FDA-Public Use
  Company Number: US-AMGEN-KDL210281

PATIENT

DRUGS (3)
  1. ENBREL [Suspect]
     Indication: DRUG USE FOR UNKNOWN INDICATION
     Dates: end: 20070101
  2. METHOTREXATE [Concomitant]
  3. PREDNISONE [Concomitant]

REACTIONS (3)
  - ANGIOEDEMA [None]
  - COMPLEMENT FACTOR DECREASED [None]
  - URTICARIA [None]
